FAERS Safety Report 24164766 (Version 1)
Quarter: 2024Q3

REPORT INFORMATION
  Report Type: Spontaneous
  Country: US (occurrence: US)
  Receive Date: 20240801
  Receipt Date: 20240801
  Transmission Date: 20241016
  Serious: No
  Sender: SANDOZ
  Company Number: US-SANDOZ-SDZ2024US069768

PATIENT
  Weight: 65.91 kg

DRUGS (2)
  1. GLATIRAMER ACETATE [Suspect]
     Active Substance: GLATIRAMER ACETATE
     Indication: Product used for unknown indication
     Dosage: UNK
     Route: 065
  2. GLATOPA [Suspect]
     Active Substance: GLATIRAMER ACETATE
     Indication: Relapsing multiple sclerosis
     Dosage: 40 MG, 3 TIMES PER WEEK
     Route: 065
     Dates: start: 202203, end: 202303

REACTIONS (2)
  - Skin discolouration [Unknown]
  - Therapeutic response unexpected [Unknown]

NARRATIVE: CASE EVENT DATE: 20230101
